FAERS Safety Report 25651243 (Version 2)
Quarter: 2025Q3

REPORT INFORMATION
  Report Type: Report from Study
  Country: CA (occurrence: CA)
  Receive Date: 20250806
  Receipt Date: 20250817
  Transmission Date: 20251021
  Serious: Yes (Other)
  Sender: ABBVIE
  Company Number: CA-ABBVIE-6401076

PATIENT
  Sex: Female

DRUGS (1)
  1. SKYRIZI [Suspect]
     Active Substance: RISANKIZUMAB-RZAA
     Indication: Crohn^s disease
     Route: 058

REACTIONS (12)
  - Stoma creation [Unknown]
  - Abdominal pain upper [Unknown]
  - Hepatic cirrhosis [Unknown]
  - General physical health deterioration [Unknown]
  - Skin burning sensation [Unknown]
  - Stoma site pain [Unknown]
  - Haemorrhage [Not Recovered/Not Resolved]
  - Investigation abnormal [Unknown]
  - Inflammation [Unknown]
  - Abdominal distension [Unknown]
  - Nausea [Unknown]
  - Musculoskeletal disorder [Unknown]
